FAERS Safety Report 5959751-X (Version None)
Quarter: 2008Q4

REPORT INFORMATION
  Report Type: 
  Country: None (occurrence: None)
  Receive Date: 20081119
  Receipt Date: 20081119
  Transmission Date: 20090506
  Serious: Yes (Hospitalization)
  Sender: FDA-Public Use
  Company Number: None

PATIENT
  Age: 42 Year
  Sex: Female

DRUGS (11)
  1. DIGOXIN [Suspect]
     Indication: CARDIAC FAILURE CONGESTIVE
     Dosage: 0.125 MG PO QD
     Route: 048
  2. APAP TAB [Concomitant]
  3. ASPIRIN [Concomitant]
  4. DOCUSATE [Concomitant]
  5. ENOXAPARIN SODIUM [Concomitant]
  6. INSULIN [Concomitant]
  7. LISINOPRIL [Concomitant]
  8. METOCLOPRAMIDE [Concomitant]
  9. ONDANSETRON [Concomitant]
  10. SENNA [Concomitant]
  11. POTASSIUM CHLORIDE [Concomitant]

REACTIONS (8)
  - BRADYCARDIA [None]
  - DIZZINESS [None]
  - HEADACHE [None]
  - HYPOTENSION [None]
  - MUSCULOSKELETAL STIFFNESS [None]
  - NAUSEA [None]
  - PHOTOPHOBIA [None]
  - VOMITING [None]
